FAERS Safety Report 5018777-3 (Version None)
Quarter: 2006Q2

REPORT INFORMATION
  Report Type: 
  Country: None (occurrence: None)
  Receive Date: 20060531
  Receipt Date: 20060523
  Transmission Date: 20061013
  Serious: Yes (Hospitalization)
  Sender: FDA-Public Use
  Company Number: 200613088BWH

PATIENT
  Age: 81 Year
  Sex: Male
  Weight: 70.3075 kg

DRUGS (3)
  1. NEXAVAR [Suspect]
     Indication: RENAL CELL CARCINOMA STAGE UNSPECIFIED
     Dosage: ORAL;400 MG, OM, ORAL
     Route: 048
     Dates: start: 20060308, end: 20060326
  2. NEXAVAR [Suspect]
     Indication: RENAL CELL CARCINOMA STAGE UNSPECIFIED
     Dosage: ORAL;400 MG, OM, ORAL
     Route: 048
     Dates: start: 20060406
  3. ALOPRIL [Concomitant]

REACTIONS (8)
  - ANOREXIA [None]
  - BLOOD PRESSURE DECREASED [None]
  - DEHYDRATION [None]
  - EXFOLIATIVE RASH [None]
  - FATIGUE [None]
  - HYPERSOMNIA [None]
  - MALNUTRITION [None]
  - RASH GENERALISED [None]
